FAERS Safety Report 8390066-9 (Version None)
Quarter: 2012Q2

REPORT INFORMATION
  Report Type: 
  Country: None (occurrence: None)
  Receive Date: 20120529
  Receipt Date: 20120517
  Transmission Date: 20120825
  Serious: Yes (Hospitalization, Other)
  Sender: FDA-Public Use
  Company Number: US-CELGENEUS-163-21880-12052224

PATIENT
  Sex: Female

DRUGS (2)
  1. REVLIMID [Suspect]
     Indication: MULTIPLE MYELOMA
     Dosage: 25 MILLIGRAM
     Route: 048
     Dates: start: 20111107
  2. ZOLOFT [Concomitant]
     Route: 065

REACTIONS (4)
  - DYSPNOEA [None]
  - OESOPHAGEAL MASS [None]
  - SYNCOPE [None]
  - STOMACH MASS [None]
